FAERS Safety Report 7651601-9 (Version None)
Quarter: 2011Q3

REPORT INFORMATION
  Report Type: 
  Country: None (occurrence: None)
  Receive Date: 20110802
  Receipt Date: 20110701
  Transmission Date: 20111222
  Serious: Yes (Other)
  Sender: FDA-Public Use
  Company Number: PHHY2011JP60827

PATIENT
  Sex: Male
  Weight: 60 kg

DRUGS (7)
  1. ATARAX [Concomitant]
     Indication: DERMATITIS ATOPIC
     Dosage: 25 MG, UNK
     Route: 048
     Dates: start: 20110405, end: 20110727
  2. NEORAL [Suspect]
     Dosage: 100 MG, UNK
     Route: 048
     Dates: start: 20100622, end: 20100720
  3. CLEMASTINE FUMARATE [Concomitant]
     Indication: DERMATITIS ATOPIC
     Dosage: 2 MG, UNK
     Route: 048
     Dates: start: 20110405, end: 20110727
  4. OLOPATADINE HCL [Concomitant]
     Indication: DERMATITIS ATOPIC
     Dosage: 10 MG, UNK
     Route: 048
     Dates: start: 20110404, end: 20110727
  5. MEILAX [Concomitant]
     Indication: DERMATITIS ATOPIC
     Dosage: 1 MG, UNK
     Route: 048
     Dates: start: 20110405, end: 20110727
  6. NEORAL [Suspect]
     Dosage: 50 MG, UNK
     Route: 048
     Dates: start: 20100721, end: 20100727
  7. NEORAL [Suspect]
     Indication: DERMATITIS ATOPIC
     Dosage: 200 MG, UNK
     Route: 048
     Dates: start: 20100531, end: 20100615

REACTIONS (4)
  - HEPATITIS ALCOHOLIC [None]
  - HEPATIC FUNCTION ABNORMAL [None]
  - MALAISE [None]
  - HEPATIC STEATOSIS [None]
